FAERS Safety Report 15260687 (Version 1)
Quarter: 2018Q3

REPORT INFORMATION
  Report Type: Spontaneous
  Country: US (occurrence: US)
  Receive Date: 20180719
  Receipt Date: 20180719
  Transmission Date: 20181010
  Serious: Yes (Hospitalization)
  Sender: FDA-Public Use
  Company Number: None

PATIENT
  Age: 35 Year
  Sex: Male
  Weight: 104.51 kg

DRUGS (2)
  1. SULFAMETHIZOLE/TRIMETHOPRIM [Suspect]
     Active Substance: SULFAMETHOXAZOLE\TRIMETHOPRIM
     Indication: URINARY TRACT INFECTION
     Route: 048
     Dates: start: 20180612, end: 20180614
  2. SULFAMETHOXAZOLE/TRIMETHOPRIM [Suspect]
     Active Substance: SULFAMETHOXAZOLE\TRIMETHOPRIM
     Indication: URINARY TRACT INFECTION
     Dosage: 800/160 MG BID PO
     Route: 048
     Dates: start: 20180612, end: 20180614

REACTIONS (5)
  - Rash generalised [None]
  - Transaminases increased [None]
  - Blood creatinine increased [None]
  - Drug hypersensitivity [None]
  - Renal tubular necrosis [None]

NARRATIVE: CASE EVENT DATE: 20180614
